FAERS Safety Report 15889103 (Version 1)
Quarter: 2019Q1

REPORT INFORMATION
  Report Type: Spontaneous
  Country: US (occurrence: US)
  Receive Date: 20190130
  Receipt Date: 20190130
  Transmission Date: 20190417
  Serious: No
  Sender: FDA-Public Use
  Company Number: US-MISSION PHARMACAL COMPANY-2061921

PATIENT
  Age: 45 Year
  Sex: Female

DRUGS (2)
  1. PROZAC [Concomitant]
     Active Substance: FLUOXETINE HYDROCHLORIDE
  2. THIOLA [Suspect]
     Active Substance: TIOPRONIN
     Indication: CYSTINURIA
     Route: 048
     Dates: start: 20190116

REACTIONS (8)
  - Musculoskeletal stiffness [Unknown]
  - Peripheral swelling [Unknown]
  - Abdominal distension [Unknown]
  - Abdominal pain upper [Unknown]
  - Dyspnoea [Recovering/Resolving]
  - Oropharyngeal pain [Unknown]
  - Lip swelling [Unknown]
  - Renal pain [Unknown]
